FAERS Safety Report 15763962 (Version 1)
Quarter: 2018Q4

REPORT INFORMATION
  Report Type: Spontaneous
  Country: JP (occurrence: JP)
  Receive Date: 20181227
  Receipt Date: 20181227
  Transmission Date: 20190205
  Serious: Yes (Other)
  Sender: FDA-Public Use
  Company Number: JP-MACLEODS PHARMACEUTICALS US LTD-MAC2018019337

PATIENT

DRUGS (2)
  1. CELECOXIB. [Suspect]
     Active Substance: CELECOXIB
     Indication: LANGERHANS^ CELL HISTIOCYTOSIS
     Dosage: UNK, 12 CYCLE
     Route: 065
  2. ZOLEDRONIC ACID [Suspect]
     Active Substance: ZOLEDRONIC ACID
     Indication: LANGERHANS^ CELL HISTIOCYTOSIS
     Dosage: 2 MILLIGRAM/SQ. METER 12 CYCLE
     Route: 042

REACTIONS (2)
  - Hypocalcaemia [Unknown]
  - Pyrexia [Unknown]
